FAERS Safety Report 16030167 (Version 1)
Quarter: 2019Q1

REPORT INFORMATION
  Report Type: Spontaneous
  Country: AT (occurrence: AT)
  Receive Date: 20190304
  Receipt Date: 20190304
  Transmission Date: 20190418
  Serious: Yes (Other)
  Sender: FDA-Public Use
  Company Number: AT-AMREGENT-20190350

PATIENT

DRUGS (1)
  1. FERINJECT [Suspect]
     Active Substance: FERRIC CARBOXYMALTOSE
     Dosage: UNKNOWN
     Route: 065

REACTIONS (4)
  - Bone cyst [Unknown]
  - Pseudofracture [Unknown]
  - Stress fracture [Unknown]
  - Osteosclerosis [Unknown]
